FAERS Safety Report 21370572 (Version 1)
Quarter: 2022Q3

REPORT INFORMATION
  Report Type: Spontaneous
  Country: US (occurrence: None)
  Receive Date: 20220922
  Receipt Date: 20220922
  Transmission Date: 20221026
  Serious: No
  Sender: FDA-Public Use
  Company Number: None

PATIENT
  Sex: Female

DRUGS (1)
  1. STELARA [Suspect]
     Active Substance: USTEKINUMAB
     Indication: Colitis ulcerative
     Dosage: 1 SYRINGE   EVERY 8 WEEKS   SUBCUTANEOUSLY?
     Route: 058
     Dates: start: 20220715

REACTIONS (2)
  - Condition aggravated [None]
  - Inflammation [None]
